FAERS Safety Report 15196868 (Version 1)
Quarter: 2018Q3

REPORT INFORMATION
  Report Type: Spontaneous
  Country: US (occurrence: US)
  Receive Date: 20180626
  Receipt Date: 20180626
  Transmission Date: 20181010
  Serious: Yes (Other)
  Sender: FDA-Public Use
  Company Number: None

PATIENT
  Age: 33 Year
  Sex: Female
  Weight: 68.1 kg

DRUGS (1)
  1. ENOXAPARIN 40 MG [Suspect]
     Active Substance: ENOXAPARIN
     Indication: PROTEIN S DEFICIENCY
     Route: 058
     Dates: start: 20180405

REACTIONS (1)
  - Injection site rash [None]

NARRATIVE: CASE EVENT DATE: 20180601
